FAERS Safety Report 6438932-5 (Version None)
Quarter: 2009Q4

REPORT INFORMATION
  Report Type: 
  Country: None (occurrence: None)
  Receive Date: 20091111
  Receipt Date: 20091111
  Transmission Date: 20100525
  Serious: Yes (Death)
  Sender: FDA-Public Use
  Company Number: None

PATIENT
  Sex: Male

DRUGS (1)
  1. SATRAPLATIN [Suspect]
     Indication: PROSTATE CANCER METASTATIC
     Dosage: SATRAPLATIN 80 MG/M2 DAILY X 5 PO
     Route: 048
     Dates: start: 20090917

REACTIONS (4)
  - EMPHYSEMA [None]
  - INTERSTITIAL LUNG DISEASE [None]
  - RESPIRATORY FAILURE [None]
  - SEPTIC SHOCK [None]
